FAERS Safety Report 18487175 (Version 3)
Quarter: 2021Q1

REPORT INFORMATION
  Report Type: Report from Study
  Country: JP (occurrence: JP)
  Receive Date: 20201110
  Receipt Date: 20210121
  Transmission Date: 20210419
  Serious: Yes (Other)
  Sender: FDA-Public Use
  Company Number: JP-PFIZER INC-2020441588

PATIENT
  Age: 85 Year
  Sex: Female

DRUGS (4)
  1. CELECOX [Suspect]
     Active Substance: CELECOXIB
     Dosage: UNK, AS NEEDED
     Route: 048
  2. ELDECALCITOL [Suspect]
     Active Substance: ELDECALCITOL
     Dosage: 0.75 UG/DAY, UNKNOWN FREQ.
     Route: 048
  3. VITAMIN D NOS [Concomitant]
     Active Substance: VITAMIN D NOS
     Dosage: UNK
  4. CELECOX [Suspect]
     Active Substance: CELECOXIB
     Dosage: 100 MG/DAY, UNKNOWN FREQ.
     Route: 048

REACTIONS (2)
  - Chronic kidney disease [Unknown]
  - Hypercalcaemia [Unknown]
